FAERS Safety Report 21925470 (Version 1)
Quarter: 2023Q1

REPORT INFORMATION
  Report Type: Spontaneous
  Country: US (occurrence: None)
  Receive Date: 20230127
  Receipt Date: 20230127
  Transmission Date: 20230418
  Serious: Yes (Hospitalization)
  Sender: FDA-Public Use
  Company Number: None

PATIENT
  Age: 76 Year
  Sex: Female

DRUGS (2)
  1. AMBRISENTAN [Suspect]
     Active Substance: AMBRISENTAN
     Indication: Pulmonary hypertension
     Dosage: 10 MG ORAL   ??TAKE 1 TABLET BY MOUTH ONCE A DAY?
     Route: 048
     Dates: start: 20210304
  2. NIFEDIPINE TAB ER [Concomitant]

REACTIONS (2)
  - Dyspnoea [None]
  - Fluid retention [None]

NARRATIVE: CASE EVENT DATE: 20230117
